FAERS Safety Report 23453581 (Version 1)
Quarter: 2024Q1

REPORT INFORMATION
  Report Type: Other
  Country: DE (occurrence: DE)
  Receive Date: 20240129
  Receipt Date: 20240129
  Transmission Date: 20240410
  Serious: Yes (Other)
  Sender: FDA-Public Use
  Company Number: None

PATIENT

DRUGS (2)
  1. AMVUTTRA [Suspect]
     Active Substance: VUTRISIRAN
     Indication: Acquired ATTR amyloidosis
     Dosage: 25 MILLIGRAM, Q3M
     Route: 058
     Dates: start: 20230919
  2. AMVUTTRA [Suspect]
     Active Substance: VUTRISIRAN
     Indication: Liver transplant

REACTIONS (7)
  - Liver injury [Not Recovered/Not Resolved]
  - Transaminases increased [Not Recovered/Not Resolved]
  - Aspartate aminotransferase increased [Not Recovered/Not Resolved]
  - Alanine aminotransferase increased [Not Recovered/Not Resolved]
  - Drug-induced liver injury [Not Recovered/Not Resolved]
  - Hepatic steatosis [Not Recovered/Not Resolved]
  - Condition aggravated [Not Recovered/Not Resolved]

NARRATIVE: CASE EVENT DATE: 20231001
